FAERS Safety Report 8891611 (Version 1)
Quarter: 2012Q4

REPORT INFORMATION
  Report Type: 
  Country: US (occurrence: US)
  Receive Date: 20121107
  Receipt Date: 20121107
  Transmission Date: 20130627
  Serious: No
  Sender: FDA-Public Use
  Company Number: US-AMGEN-USASP2011048617

PATIENT
  Age: 21 Year
  Sex: Male
  Weight: 81.63 kg

DRUGS (5)
  1. ENBREL [Suspect]
     Indication: PRODUCT USED FOR UNKNOWN INDICATION
     Dosage: 50 mg, qwk
  2. VITAMIN C                          /00008001/ [Concomitant]
     Dosage: 500 mg, UNK
  3. CALCIUM + VITAMIN D                /01483701/ [Concomitant]
     Dosage: 500 mg, UNK
  4. BIOTIN [Concomitant]
     Dosage: 5000 UNK, UNK
  5. OMEGA 3                            /00931501/ [Concomitant]
     Dosage: 1000 mg, UNK

REACTIONS (1)
  - Fat tissue increased [Unknown]
